FAERS Safety Report 10034499 (Version 1)
Quarter: 2014Q1

REPORT INFORMATION
  Report Type: Spontaneous
  Country: US (occurrence: None)
  Receive Date: 20140306
  Receipt Date: 20140306
  Transmission Date: 20141002
  Serious: Yes (Disabling, Other)
  Sender: FDA-Public Use
  Company Number: 163-21880-13021091

PATIENT
  Age: 72 Year
  Sex: Female
  Weight: 98 kg

DRUGS (9)
  1. REVLIMID [Suspect]
     Indication: MYELODYSPLASTIC SYNDROME
     Dosage: 10 MG, 1 IN 1 D, PO?01/09/2013 - INTERRUPTED
     Route: 048
     Dates: start: 20130109
  2. REVLIMID [Suspect]
     Indication: PLASMA CELL MYELOMA
     Dosage: 10 MG, 1 IN 1 D, PO?01/09/2013 - INTERRUPTED
     Route: 048
     Dates: start: 20130109
  3. OMEPRAZOLE (OMEPRAZOLE) [Concomitant]
  4. SIMVASTATIN (SIMVASTATIN) [Concomitant]
  5. AMITRIPTYLINE (AMITRIPTYLINE) [Concomitant]
  6. ATENOLOL (ATENOLOL) [Concomitant]
  7. SPIRONAZIDE [Concomitant]
  8. ASA (ACETYLSALICYLIC ACID) [Concomitant]
  9. FUROSEMIDE (FUROSEMIDE) [Concomitant]

REACTIONS (2)
  - Deep vein thrombosis [None]
  - Neutropenia [None]
